APPROVED DRUG PRODUCT: INAPSINE
Active Ingredient: DROPERIDOL
Strength: 2.5MG/ML
Dosage Form/Route: INJECTABLE;INJECTION
Application: N016796 | Product #001
Applicant: RISING PHARMA HOLDINGS INC
Approved: Approved Prior to Jan 1, 1982 | RLD: Yes | RS: No | Type: DISCN